FAERS Safety Report 13509974 (Version 1)
Quarter: 2017Q2

REPORT INFORMATION
  Report Type: Spontaneous
  Country: US (occurrence: US)
  Receive Date: 20170503
  Receipt Date: 20170503
  Transmission Date: 20170830
  Serious: Yes (Other)
  Sender: FDA-Public Use
  Company Number: US-SA-2017SA058670

PATIENT
  Age: 80 Year
  Sex: Female
  Weight: 77.6 kg

DRUGS (15)
  1. FOLVITE [Concomitant]
     Active Substance: FOLIC ACID
  2. PRALUENT [Suspect]
     Active Substance: ALIROCUMAB
     Indication: PRODUCT USED FOR UNKNOWN INDICATION
     Route: 058
  3. CLEOCIN [Concomitant]
     Active Substance: CLINDAMYCIN PHOSPHATE
     Dates: start: 20161018
  4. VITAMIN D3 [Concomitant]
     Active Substance: CHOLECALCIFEROL
  5. ALIROCUMAB PREFILLED PEN [Concomitant]
     Active Substance: ALIROCUMAB
  6. VITAMIN C [Concomitant]
     Active Substance: ASCORBIC ACID
     Dates: start: 20080917
  7. VITAMIN D NOS/CALCIUM CARBONATE [Concomitant]
  8. ZYRTEC [Concomitant]
     Active Substance: CETIRIZINE HYDROCHLORIDE
  9. MAGNESIUM [Concomitant]
     Active Substance: MAGNESIUM
  10. LOTENSIN [Concomitant]
     Active Substance: BENAZEPRIL HYDROCHLORIDE
     Dates: start: 20151218
  11. IMDUR [Concomitant]
     Active Substance: ISOSORBIDE MONONITRATE
  12. PRAVASTATIN. [Suspect]
     Active Substance: PRAVASTATIN
     Route: 065
  13. ASPIRIN. [Concomitant]
     Active Substance: ASPIRIN
     Dates: start: 20070907
  14. PROAIR HFA [Concomitant]
     Active Substance: ALBUTEROL SULFATE
  15. TENORMIN [Concomitant]
     Active Substance: ATENOLOL

REACTIONS (7)
  - Injection site swelling [Recovered/Resolved]
  - Injection site pruritus [Recovered/Resolved]
  - Blood creatine phosphokinase increased [Unknown]
  - Myalgia [Recovered/Resolved]
  - Injection site erythema [Recovered/Resolved]
  - C-reactive protein decreased [Unknown]
  - Reaction to drug excipients [Recovered/Resolved]
